FAERS Safety Report 6023640-5 (Version None)
Quarter: 2008Q4

REPORT INFORMATION
  Report Type: 
  Country: None (occurrence: None)
  Receive Date: 20081222
  Receipt Date: 20080925
  Transmission Date: 20090506
  Serious: No
  Sender: FDA-Public Use
  Company Number: SPV1-2008-01951

PATIENT
  Age: 7 Year
  Sex: Male
  Weight: 23.6 kg

DRUGS (3)
  1. VYVANSE [Suspect]
     Indication: ATTENTION DEFICIT/HYPERACTIVITY DISORDER
     Dosage: 30 MG, 1X/DAY:QD, ORAL
     Route: 048
     Dates: start: 20080903
  2. NASONEX [Suspect]
     Indication: NASAL CONGESTION
     Dosage: 50 UG, 1X/DAY:QD, NASAL
     Route: 045
     Dates: start: 20080903
  3. VITAMINS NOS (VITAMINS NOS) [Concomitant]

REACTIONS (3)
  - AGGRESSION [None]
  - THINKING ABNORMAL [None]
  - TIC [None]
